FAERS Safety Report 5575211-2 (Version None)
Quarter: 2007Q4

REPORT INFORMATION
  Report Type: 
  Country: None (occurrence: None)
  Receive Date: 20071227
  Receipt Date: 20071218
  Transmission Date: 20080405
  Serious: Yes (Other)
  Sender: FDA-Public Use
  Company Number: FR-PFIZER INC-2007107401

PATIENT
  Sex: Male

DRUGS (1)
  1. VARENICLINE [Suspect]
     Indication: DRUG USE FOR UNKNOWN INDICATION

REACTIONS (4)
  - DELIRIUM [None]
  - DEPRESSION [None]
  - PERITONITIS [None]
  - SURGERY [None]
